FAERS Safety Report 13590565 (Version 1)
Quarter: 2017Q2

REPORT INFORMATION
  Report Type: Spontaneous
  Country: NL (occurrence: NL)
  Receive Date: 20170530
  Receipt Date: 20170530
  Transmission Date: 20170830
  Serious: Yes (Other)
  Sender: FDA-Public Use
  Company Number: NL-TEVA-773710ROM

PATIENT
  Sex: Male

DRUGS (1)
  1. PREDNISON [Suspect]
     Active Substance: PREDNISONE

REACTIONS (2)
  - Muscle rupture [Unknown]
  - Tendon rupture [Unknown]
